FAERS Safety Report 6603538-1 (Version None)
Quarter: 2010Q1

REPORT INFORMATION
  Report Type: 
  Country: None (occurrence: None)
  Receive Date: 20100226
  Receipt Date: 20090914
  Transmission Date: 20100710
  Serious: No
  Sender: FDA-Public Use
  Company Number: A0807258A

PATIENT
  Age: 46 Year
  Sex: Female

DRUGS (3)
  1. VALTREX [Suspect]
     Indication: GENITAL HERPES
     Route: 048
     Dates: start: 19990101
  2. LEVOXYL [Concomitant]
  3. PRILOSEC [Concomitant]

REACTIONS (4)
  - FEELING HOT [None]
  - HEADACHE [None]
  - MALAISE [None]
  - TREMOR [None]
